FAERS Safety Report 13775299 (Version 1)
Quarter: 2017Q3

REPORT INFORMATION
  Report Type: Spontaneous
  Country: US (occurrence: US)
  Receive Date: 20170720
  Receipt Date: 20170720
  Transmission Date: 20171127
  Serious: No
  Sender: FDA-Public Use
  Company Number: US-MYLANLABS-2017M1022873

PATIENT
  Sex: Female
  Weight: 53 kg

DRUGS (2)
  1. PREDNISONE. [Suspect]
     Active Substance: PREDNISONE
     Indication: ADRENAL INSUFFICIENCY
     Dosage: 2.5 MG TABLETS, 3 OR 4 TIMES A DAY
     Route: 048
     Dates: start: 2012
  2. PREDNISONE. [Suspect]
     Active Substance: PREDNISONE
     Dosage: 2.5 MG TABLETS, 4 TIMES A DAY
     Route: 048
     Dates: start: 20170313

REACTIONS (1)
  - Anxiety [Unknown]
